FAERS Safety Report 7727535-8 (Version None)
Quarter: 2011Q3

REPORT INFORMATION
  Report Type: 
  Country: None (occurrence: None)
  Receive Date: 20110902
  Receipt Date: 20110830
  Transmission Date: 20111222
  Serious: No
  Sender: FDA-Public Use
  Company Number: US-PFIZER INC-2011203498

PATIENT
  Sex: Male

DRUGS (1)
  1. XANAX [Suspect]
     Indication: ANXIETY
     Dosage: 2 MG, UNK
     Route: 048

REACTIONS (6)
  - PAIN [None]
  - DRUG INTOLERANCE [None]
  - FLUSHING [None]
  - FEELING HOT [None]
  - FEELING ABNORMAL [None]
  - BLOOD PRESSURE INCREASED [None]
